FAERS Safety Report 18688510 (Version 1)
Quarter: 2020Q4

REPORT INFORMATION
  Report Type: Spontaneous
  Country: US (occurrence: US)
  Receive Date: 20201231
  Receipt Date: 20201231
  Transmission Date: 20210114
  Serious: Yes (Death, Hospitalization, Other)
  Sender: FDA-Public Use
  Company Number: US-SA-2020SA374039

PATIENT

DRUGS (2)
  1. DICLOFENAC [Concomitant]
     Active Substance: DICLOFENAC
  2. ALEMTUZUMAB [Suspect]
     Active Substance: ALEMTUZUMAB
     Dosage: INFUSION
     Route: 041

REACTIONS (7)
  - Unresponsive to stimuli [Fatal]
  - Loss of consciousness [Fatal]
  - Brain herniation [Fatal]
  - Headache [Fatal]
  - Nausea [Fatal]
  - Cerebral haemorrhage [Fatal]
  - Chest discomfort [Recovered/Resolved]
